FAERS Safety Report 18728055 (Version 4)
Quarter: 2021Q1

REPORT INFORMATION
  Report Type: Spontaneous
  Country: US (occurrence: US)
  Receive Date: 20210111
  Receipt Date: 20210331
  Transmission Date: 20210419
  Serious: No
  Sender: FDA-Public Use
  Company Number: US-BLUEPRINT MEDICINES CORPORATION-SP-US-2020-001399

PATIENT
  Sex: Male

DRUGS (2)
  1. AYVAKIT [Suspect]
     Active Substance: AVAPRITINIB
     Route: 048
     Dates: start: 2016
  2. AYVAKIT [Suspect]
     Active Substance: AVAPRITINIB
     Indication: GASTROINTESTINAL STROMAL TUMOUR
     Route: 048
     Dates: start: 20200806

REACTIONS (7)
  - Memory impairment [Recovering/Resolving]
  - Abulia [Unknown]
  - Anxiety [Unknown]
  - Product dose omission in error [Unknown]
  - Impaired work ability [Unknown]
  - Amnesia [Unknown]
  - Cognitive disorder [Recovering/Resolving]
